FAERS Safety Report 7607536-0 (Version None)
Quarter: 2011Q3

REPORT INFORMATION
  Report Type: 
  Country: None (occurrence: None)
  Receive Date: 20110713
  Receipt Date: 20110606
  Transmission Date: 20111222
  Serious: Yes (Other)
  Sender: FDA-Public Use
  Company Number: DE-BAYER-2011-013076

PATIENT
  Age: 74 Year
  Sex: Female
  Weight: 60 kg

DRUGS (1)
  1. AVELOX [Suspect]
     Indication: BRONCHITIS CHRONIC
     Dosage: 400 MG, UNK
     Dates: start: 20110124, end: 20110128

REACTIONS (4)
  - IVTH NERVE PARALYSIS [None]
  - CONCUSSION [None]
  - DIPLOPIA [None]
  - ACCIDENT [None]
